FAERS Safety Report 10229783 (Version 1)
Quarter: 2014Q2

REPORT INFORMATION
  Report Type: Report from Study
  Country: DE (occurrence: DE)
  Receive Date: 20140611
  Receipt Date: 20140611
  Transmission Date: 20141212
  Serious: Yes (Other)
  Sender: FDA-Public Use
  Company Number: DE-JNJFOC-20140602972

PATIENT
  Sex: 0

DRUGS (1)
  1. EDURANT [Suspect]
     Indication: HIV INFECTION
     Route: 048

REACTIONS (1)
  - Gastrointestinal disorder [Recovered/Resolved]
